FAERS Safety Report 8983911 (Version 1)
Quarter: 2012Q4

REPORT INFORMATION
  Report Type: Spontaneous
  Country: US (occurrence: None)
  Receive Date: 20121212
  Receipt Date: 20121212
  Transmission Date: 20130627
  Serious: Yes (Other)
  Sender: FDA-Public Use
  Company Number: 2012SA088729

PATIENT
  Age: 43 Year
  Sex: Male

DRUGS (1)
  1. ICY HOT [Suspect]
     Dates: start: 2012, end: 2012

REACTIONS (6)
  - Application site burn [None]
  - Chemical injury [None]
  - Hypersensitivity [None]
  - Swelling face [None]
  - Swollen tongue [None]
  - Feeling abnormal [None]
